FAERS Safety Report 6534752-1 (Version None)
Quarter: 2010Q1

REPORT INFORMATION
  Report Type: 
  Country: None (occurrence: None)
  Receive Date: 20100112
  Receipt Date: 20100104
  Transmission Date: 20100710
  Serious: Yes (Hospitalization)
  Sender: FDA-Public Use
  Company Number: RS-ABBOTT-10P-303-0617440-00

PATIENT
  Age: 18 Year
  Sex: Male

DRUGS (5)
  1. DEPAKENE [Suspect]
     Indication: GRAND MAL CONVULSION
     Dates: start: 19990101
  2. CARBAMAZEPINE [Interacting]
     Indication: GRAND MAL CONVULSION
  3. PARACETAMOL [Interacting]
     Indication: SEPSIS
  4. AMOXICILLIN [Concomitant]
     Indication: DRUG USE FOR UNKNOWN INDICATION
  5. PHENOBARBITAL TAB [Concomitant]
     Indication: DRUG USE FOR UNKNOWN INDICATION
     Dates: start: 19940101, end: 19990101

REACTIONS (15)
  - BLOOD LACTATE DEHYDROGENASE INCREASED [None]
  - COAGULOPATHY [None]
  - DRUG INTERACTION [None]
  - DRUG RASH WITH EOSINOPHILIA AND SYSTEMIC SYMPTOMS [None]
  - EOSINOPHILIA [None]
  - HEPATITIS [None]
  - HEPATOMEGALY [None]
  - HYPERBILIRUBINAEMIA [None]
  - LEUKOCYTOSIS [None]
  - LYMPHADENOPATHY [None]
  - PROCALCITONIN INCREASED [None]
  - PROTHROMBIN TIME PROLONGED [None]
  - PYREXIA [None]
  - RASH MACULO-PAPULAR [None]
  - SPLENOMEGALY [None]
